FAERS Safety Report 7936171-X (Version None)
Quarter: 2011Q4

REPORT INFORMATION
  Report Type: 
  Country: None (occurrence: None)
  Receive Date: 20111123
  Receipt Date: 20111121
  Transmission Date: 20120403
  Serious: Yes (Other)
  Sender: FDA-Public Use
  Company Number: EG-PFIZER INC-2011285061

PATIENT
  Age: 3 Year
  Sex: Female

DRUGS (1)
  1. LYRICA [Suspect]
     Dosage: 675 MG, SINGLE
     Route: 048
     Dates: start: 20111110, end: 20111110

REACTIONS (4)
  - STRABISMUS [None]
  - ACCIDENTAL DRUG INTAKE BY CHILD [None]
  - FALL [None]
  - GAIT DISTURBANCE [None]
